FAERS Safety Report 5157943-3 (Version None)
Quarter: 2006Q4

REPORT INFORMATION
  Report Type: 
  Country: None (occurrence: None)
  Receive Date: 20061116
  Receipt Date: 20060619
  Transmission Date: 20070319
  Serious: Yes (Other)
  Sender: FDA-Public Use
  Company Number: 2006027284

PATIENT
  Age: 66 Year
  Sex: Female
  Weight: 65.7716 kg

DRUGS (1)
  1. BEXTRA [Suspect]
     Indication: ARTHRITIS
     Dates: start: 20030101

REACTIONS (10)
  - DRUG HYPERSENSITIVITY [None]
  - FIBROMYALGIA [None]
  - GUTTATE PSORIASIS [None]
  - LUNG INFILTRATION [None]
  - MENISCUS LESION [None]
  - NERVE COMPRESSION [None]
  - PROCEDURAL PAIN [None]
  - RASH PRURITIC [None]
  - STEVENS-JOHNSON SYNDROME [None]
  - TREATMENT NONCOMPLIANCE [None]
